FAERS Safety Report 7640716-7 (Version None)
Quarter: 2011Q3

REPORT INFORMATION
  Report Type: 
  Country: None (occurrence: None)
  Receive Date: 20110728
  Receipt Date: 20110719
  Transmission Date: 20111222
  Serious: Yes (Death)
  Sender: FDA-Public Use
  Company Number: JP-ROCHE-785852

PATIENT
  Sex: Male
  Weight: 51 kg

DRUGS (11)
  1. LANSOPRAZOLE [Concomitant]
     Dosage: PERORAL AGENT
     Route: 048
  2. MUCOSTA [Concomitant]
     Dosage: PERORAL AGENT
     Route: 048
  3. MIDODRINE HYDROCHLORIDE [Concomitant]
     Dosage: METLIGINE
     Route: 048
  4. RISUMIC [Concomitant]
     Dosage: PERORAL AGENT
     Route: 048
  5. SIGMART [Concomitant]
     Route: 048
  6. ITRACONAZOLE [Concomitant]
     Dosage: PERORAL LIQUID PREPARATION
     Route: 048
  7. DOPS [Concomitant]
     Dosage: PERORAL AGENT
     Route: 048
  8. PREDNISOLONE [Concomitant]
     Route: 046
  9. KALGUT [Concomitant]
     Dosage: PERORAL AGENT
     Route: 048
  10. TOCILIZUMAB [Suspect]
     Indication: CASTLEMAN'S DISEASE
     Dosage: DOSE: 8 MG/KG
     Route: 041
     Dates: start: 20110421, end: 20110421
  11. CALCIUM CARBONATE [Concomitant]
     Dosage: CALTAN OD(PRECPITATED CALCIUM CARBONATE)
     Route: 048

REACTIONS (8)
  - LOSS OF CONSCIOUSNESS [None]
  - BUNDLE BRANCH BLOCK RIGHT [None]
  - SUPRAVENTRICULAR EXTRASYSTOLES [None]
  - BLOOD PRESSURE DECREASED [None]
  - CARDIAC ARREST [None]
  - CARDIAC FAILURE [None]
  - RESPIRATORY ARREST [None]
  - ARRHYTHMIA [None]
